FAERS Safety Report 4902889-6 (Version None)
Quarter: 2006Q1

REPORT INFORMATION
  Report Type: 
  Country: None (occurrence: None)
  Receive Date: 20060207
  Receipt Date: 20060126
  Transmission Date: 20060701
  Serious: Yes (Hospitalization)
  Sender: FDA-Public Use
  Company Number: PHBS2006JP01607

PATIENT
  Age: 60 Year
  Sex: Male

DRUGS (3)
  1. VOLTAREN [Suspect]
     Indication: PYREXIA
     Dosage: 50 MG/DAY
     Route: 048
     Dates: start: 20051224
  2. PL GRAN. [Concomitant]
     Route: 048
     Dates: start: 20051224
  3. SELBEX [Concomitant]
     Route: 048
     Dates: start: 20051224

REACTIONS (5)
  - BLOOD BILIRUBIN INCREASED [None]
  - FEELING HOT [None]
  - JAUNDICE [None]
  - OCULAR ICTERUS [None]
  - STOMACH DISCOMFORT [None]
